FAERS Safety Report 5077814-0 (Version None)
Quarter: 2006Q3

REPORT INFORMATION
  Report Type: 
  Country: None (occurrence: None)
  Receive Date: 20060803
  Receipt Date: 20060725
  Transmission Date: 20061208
  Serious: Yes (Other)
  Sender: FDA-Public Use
  Company Number: 200610173

PATIENT
  Age: 31 Year
  Sex: Female

DRUGS (1)
  1. RHOPHYLAC [Suspect]
     Dates: start: 20060216, end: 20060216

REACTIONS (2)
  - COOMBS DIRECT TEST POSITIVE [None]
  - RHESUS ANTIBODIES POSITIVE [None]
